FAERS Safety Report 8912283 (Version 1)
Quarter: 2012Q4

REPORT INFORMATION
  Report Type: 
  Country: SE (occurrence: SE)
  Receive Date: 20121115
  Receipt Date: 20121115
  Transmission Date: 20130627
  Serious: Yes (Hospitalization)
  Sender: FDA-Public Use
  Company Number: SE-PFIZER INC-2012281204

PATIENT
  Age: 22 Year
  Sex: Female
  Weight: 63.6 kg

DRUGS (2)
  1. GENOTROPIN [Suspect]
     Dosage: 0.8 mg, 1x/day, 7 injections/week
     Route: 058
     Dates: start: 20090601
  2. LEVOTHYROXINE [Concomitant]
     Indication: HYPOTHYROIDISM
     Dosage: UNK
     Dates: start: 20090601

REACTIONS (1)
  - Limb injury [Unknown]
